FAERS Safety Report 4388076-1 (Version None)
Quarter: 2004Q2

REPORT INFORMATION
  Report Type: 
  Country: None (occurrence: None)
  Receive Date: 20040629
  Receipt Date: 20040629
  Transmission Date: 20050107
  Serious: Yes (Hospitalization)
  Sender: FDA-Public Use
  Company Number: None

PATIENT
  Sex: Male
  Weight: 42.7 kg

DRUGS (2)
  1. FUROSEMIDE [Suspect]
     Indication: CARDIAC FAILURE CONGESTIVE
     Dosage: 80 MG Q 12H ORAL
     Route: 048
     Dates: start: 20040511, end: 20040513
  2. FUROSEMIDE [Suspect]
     Indication: OEDEMA
     Dosage: 80 MG Q 12H ORAL
     Route: 048
     Dates: start: 20040511, end: 20040513

REACTIONS (5)
  - ASTHENIA [None]
  - CONFUSIONAL STATE [None]
  - DEHYDRATION [None]
  - MEDICATION ERROR [None]
  - URINE OUTPUT DECREASED [None]
